FAERS Safety Report 7126454-8 (Version None)
Quarter: 2010Q4

REPORT INFORMATION
  Report Type: 
  Country: None (occurrence: None)
  Receive Date: 20101129
  Receipt Date: 20101125
  Transmission Date: 20110411
  Serious: Yes (Death)
  Sender: FDA-Public Use
  Company Number: DE-CEPHALON-2010006131

PATIENT
  Sex: Female

DRUGS (4)
  1. TREANDA [Suspect]
     Indication: NON-HODGKIN'S LYMPHOMA
     Route: 041
     Dates: start: 20071108, end: 20080428
  2. TREANDA [Suspect]
     Route: 041
     Dates: start: 20080427, end: 20080428
  3. RITUXIMAB [Suspect]
     Indication: NON-HODGKIN'S LYMPHOMA
     Dates: start: 20071108, end: 20080428
  4. RITUXIMAB [Suspect]
     Dates: start: 20080426, end: 20080426

REACTIONS (1)
  - MYELODYSPLASTIC SYNDROME [None]
